FAERS Safety Report 4816256-7 (Version None)
Quarter: 2005Q4

REPORT INFORMATION
  Report Type: 
  Country: None (occurrence: None)
  Receive Date: 20051026
  Receipt Date: 20051010
  Transmission Date: 20060501
  Serious: Yes (Hospitalization, Other)
  Sender: FDA-Public Use
  Company Number: 8004591

PATIENT
  Age: 30 Year
  Sex: Male

DRUGS (2)
  1. LEVETIRACETAM [Suspect]
     Indication: EPILEPSY
     Dosage: 2000 MG /D PO
     Route: 048
     Dates: start: 20030201, end: 20030301
  2. LEVETIRACETAM [Suspect]
     Indication: EPILEPSY
     Dosage: 500 MG /D PO
     Route: 048
     Dates: start: 20030301

REACTIONS (3)
  - COMPLEX PARTIAL SEIZURES [None]
  - DRUG INEFFECTIVE [None]
  - STATUS EPILEPTICUS [None]
